FAERS Safety Report 23781133 (Version 1)
Quarter: 2024Q2

REPORT INFORMATION
  Report Type: Spontaneous
  Country: US (occurrence: US)
  Receive Date: 20240425
  Receipt Date: 20240425
  Transmission Date: 20240715
  Serious: No
  Sender: FDA-Public Use
  Company Number: US-APOTEX-2023AP008610

PATIENT
  Age: 13 Month
  Sex: Male

DRUGS (16)
  1. ANASTROZOLE [Suspect]
     Active Substance: ANASTROZOLE
     Indication: Precocious puberty
     Dosage: 1 MILLIGRAM
     Route: 065
  2. LETROZOLE [Suspect]
     Active Substance: LETROZOLE
     Indication: Precocious puberty
     Dosage: 2.5 MILLIGRAM, QD
     Route: 065
  3. BICALUTAMIDE [Suspect]
     Active Substance: BICALUTAMIDE
     Indication: Precocious puberty
     Dosage: 12.5 MILLIGRAM, QD
     Route: 065
  4. BICALUTAMIDE [Suspect]
     Active Substance: BICALUTAMIDE
     Dosage: 50 MILLIGRAM, QD
     Route: 065
  5. BICALUTAMIDE [Suspect]
     Active Substance: BICALUTAMIDE
     Dosage: 12.5 MILLIGRAM, QD
     Route: 065
  6. BICALUTAMIDE [Suspect]
     Active Substance: BICALUTAMIDE
     Dosage: 25 MILLIGRAM, QD
     Route: 065
  7. BICALUTAMIDE [Suspect]
     Active Substance: BICALUTAMIDE
     Dosage: 50 MILLIGRAM, QD
     Route: 065
  8. BICALUTAMIDE [Suspect]
     Active Substance: BICALUTAMIDE
     Dosage: 100 MILLIGRAM
     Route: 065
  9. ABIRATERONE [Concomitant]
     Active Substance: ABIRATERONE
     Indication: Precocious puberty
     Dosage: 62.5 MILLIGRAM, QD
     Route: 065
  10. ABIRATERONE [Concomitant]
     Active Substance: ABIRATERONE
     Dosage: 125 MILLIGRAM, QD
     Route: 065
  11. ABIRATERONE [Concomitant]
     Active Substance: ABIRATERONE
     Dosage: 250 MILLIGRAM, QD
     Route: 065
  12. KETOCONAZOLE [Concomitant]
     Active Substance: KETOCONAZOLE
     Indication: Precocious puberty
     Dosage: 200 MILLIGRAM, QD
     Route: 065
  13. PREDNISOLONE [Concomitant]
     Active Substance: PREDNISOLONE
     Indication: Precocious puberty
     Dosage: 0.99 MILLIGRAM, BID
     Route: 065
  14. PREDNISOLONE [Concomitant]
     Active Substance: PREDNISOLONE
     Dosage: 1.5 MILLIGRAM, BID
     Route: 065
  15. HYDROCORTISONE [Concomitant]
     Active Substance: HYDROCORTISONE
     Indication: Precocious puberty
     Dosage: UNK, 7.5 MG EVERY AM, 2.5 MG EVERY PM
     Route: 065
  16. HYDROCORTISONE [Concomitant]
     Active Substance: HYDROCORTISONE
     Dosage: UNK, DECREASE AM HYDROCORTISONE DOSE TO 5 MG
     Route: 065

REACTIONS (1)
  - Drug resistance [Unknown]
